FAERS Safety Report 8893048 (Version 1)
Quarter: 2012Q4

REPORT INFORMATION
  Report Type: 
  Country: US (occurrence: US)
  Receive Date: 20121107
  Receipt Date: 20121107
  Transmission Date: 20130627
  Serious: Yes (Hospitalization)
  Sender: FDA-Public Use
  Company Number: US-AMGEN-USASP2011053912

PATIENT
  Age: 51 Year
  Sex: Male
  Weight: 90.7 kg

DRUGS (11)
  1. ENBREL [Suspect]
     Indication: PRODUCT USED FOR UNKNOWN INDICATION
     Dosage: 50 mg, qwk
     Route: 058
  2. PEGASYS [Concomitant]
     Dosage: 180 mug/ml, UNK
  3. PAXIL [Concomitant]
     Dosage: 10 mg, UNK
     Route: 048
  4. AMLODIPINE [Concomitant]
     Dosage: 5 mg, UNK
     Route: 048
  5. CIPRO                              /00697201/ [Concomitant]
     Dosage: 500 mg, UNK
     Route: 048
  6. RIBAVIRIN [Concomitant]
     Dosage: 200 mg, UNK
     Route: 048
  7. HYDROXYCHLOROQUINE [Concomitant]
     Dosage: 200 mg, UNK
     Route: 048
  8. OXYBUTYNIN [Concomitant]
     Dosage: 5 mg, UNK
     Route: 048
  9. TELAPREVIR [Concomitant]
     Dosage: 375 mg, UNK
     Route: 048
  10. PERCOCET                           /00446701/ [Concomitant]
     Dosage: UNK
     Route: 048
  11. NITROFURANTOIIN NS [Concomitant]
     Dosage: 100 mg, UNK
     Route: 048

REACTIONS (4)
  - White blood cell count decreased [Unknown]
  - Infection [Unknown]
  - Fatigue [Unknown]
  - Skin discolouration [Unknown]
